FAERS Safety Report 12905751 (Version 1)
Quarter: 2016Q4

REPORT INFORMATION
  Report Type: Spontaneous
  Country: US (occurrence: US)
  Receive Date: 20161102
  Receipt Date: 20161102
  Transmission Date: 20170207
  Serious: Yes (Other)
  Sender: FDA-Public Use
  Company Number: None

PATIENT
  Age: 33 Year
  Sex: Male
  Weight: 83.92 kg

DRUGS (5)
  1. MULTIVITAMINS [Concomitant]
     Active Substance: VITAMINS
  2. ZOLEDRONIC ACID 5MG [Suspect]
     Active Substance: ZOLEDRONIC ACID
     Indication: OSTEOPOROSIS
     Dosage: ZOLEDRONIC ACID 5MG - IV - YEARLY INITIAL DOSE WAS ON 10/18/2016
     Route: 042
     Dates: start: 20161018
  3. DOCQLACE [Concomitant]
     Active Substance: DOCUSATE SODIUM
  4. VIAGRA [Concomitant]
     Active Substance: SILDENAFIL CITRATE
  5. DETROL LA [Concomitant]
     Active Substance: TOLTERODINE TARTRATE

REACTIONS (6)
  - Bedridden [None]
  - Bone pain [None]
  - Myalgia [None]
  - Influenza like illness [None]
  - Arthralgia [None]
  - Pain in jaw [None]

NARRATIVE: CASE EVENT DATE: 20161018
